FAERS Safety Report 17068433 (Version 1)
Quarter: 2019Q4

REPORT INFORMATION
  Report Type: Spontaneous
  Country: GB (occurrence: GB)
  Receive Date: 20191123
  Receipt Date: 20191123
  Transmission Date: 20200122
  Serious: Yes (Death)
  Sender: FDA-Public Use
  Company Number: GB-ACCORD-161444

PATIENT
  Age: 62 Year
  Sex: Male

DRUGS (8)
  1. ZOPICLONE [Concomitant]
     Active Substance: ZOPICLONE
  2. TECHNESCAN MAG3 [Suspect]
     Active Substance: TECHNETIUM TC-99M TIATIDE
     Route: 042
     Dates: start: 20190403, end: 20190403
  3. PIVMECILLINAM/PIVMECILLINAM HYDROCHLORIDE [Concomitant]
  4. FUROSEMIDE. [Suspect]
     Active Substance: FUROSEMIDE
     Dosage: 20 MG
     Route: 042
     Dates: start: 20190403, end: 20190403
  5. TRIMETHOPRIM. [Concomitant]
     Active Substance: TRIMETHOPRIM
  6. LACTULOSE. [Concomitant]
     Active Substance: LACTULOSE
  7. CYCLIZINE [Concomitant]
     Active Substance: CYCLIZINE
  8. NITROFURANTOIN/NITROFURANTOIN SODIUM [Concomitant]
     Active Substance: NITROFURANTOIN

REACTIONS (2)
  - Multiple organ dysfunction syndrome [Fatal]
  - Incorrect drug administration rate [Unknown]

NARRATIVE: CASE EVENT DATE: 20190403
